FAERS Safety Report 8814971 (Version 7)
Quarter: 2014Q3

REPORT INFORMATION
  Report Type: Report from Study
  Country: JP (occurrence: JP)
  Receive Date: 20120928
  Receipt Date: 20140909
  Transmission Date: 20150326
  Serious: Yes (Other)
  Sender: FDA-Public Use
  Company Number: PHHY2012JP083551

PATIENT
  Age: 29 Year
  Sex: Female
  Weight: 61 kg

DRUGS (14)
  1. MYSLEE [Concomitant]
     Active Substance: ZOLPIDEM TARTRATE
     Indication: INSOMNIA
     Dosage: 10 MG, PRN
     Route: 048
  2. KENALOG [Concomitant]
     Active Substance: TRIAMCINOLONE ACETONIDE
     Dosage: 5 G, UNK
     Route: 051
     Dates: start: 20120905, end: 20120911
  3. BERIZYM [Concomitant]
     Active Substance: CELLULASE\DIASTASE\LIPASE
     Dosage: 3 G, UNK
     Route: 048
     Dates: start: 20121003
  4. CEFAZOLIN INJECTION [Suspect]
     Active Substance: CEFAZOLIN
     Indication: ENTERITIS INFECTIOUS
     Dosage: 1 G, QD
     Route: 042
     Dates: start: 20120905, end: 20120905
  5. METHYLCOBAL [Concomitant]
     Indication: PROPHYLAXIS
     Dosage: 2000 UG, UNK
     Route: 048
     Dates: start: 20120516
  6. LOXONIN [Concomitant]
     Active Substance: LOXOPROFEN SODIUM
     Indication: PROPHYLAXIS
     Dosage: 60 MG, PRN
     Route: 048
  7. INTAL [Concomitant]
     Active Substance: CROMOLYN SODIUM
     Dosage: 9.5 ML, UNK
     Route: 045
     Dates: start: 20121031, end: 20130125
  8. VITAMEDIN [Concomitant]
     Active Substance: CYANOCOBALAMIN\PYRIDOXINE HYDROCHLORIDE\THIAMINE
     Route: 048
     Dates: start: 20120905, end: 20120911
  9. BAYASPIRIN [Concomitant]
     Active Substance: ASPIRIN
     Dosage: 100 MG, UNK
     Route: 048
     Dates: end: 20120418
  10. CEFZON [Concomitant]
     Active Substance: CEFDINIR
     Dosage: 300 MG, UNK
     Route: 048
     Dates: start: 20120905, end: 20120907
  11. GILENYA [Suspect]
     Active Substance: FINGOLIMOD HYDROCHLORIDE
     Indication: MULTIPLE SCLEROSIS
     Dosage: 0.5 MG, QD
     Route: 048
     Dates: start: 20120228
  12. MIYA-BM [Concomitant]
     Active Substance: CLOSTRIDIUM BUTYRICUM SPORES STRAIN M-55
     Route: 048
     Dates: start: 20120905, end: 20120925
  13. TAKEPRON [Concomitant]
     Active Substance: LANSOPRAZOLE
     Dosage: 15 MG, UNK
     Route: 048
     Dates: end: 20120418
  14. SOLU-MEDROL [Concomitant]
     Active Substance: METHYLPREDNISOLONE SODIUM SUCCINATE
     Dosage: 1000 MG, UNK
     Route: 051
     Dates: start: 20130109, end: 20130111

REACTIONS (8)
  - Dermoid cyst [Recovered/Resolved]
  - Rhinitis allergic [Recovered/Resolved]
  - Enteritis infectious [Recovered/Resolved]
  - Hepatic function abnormal [Recovered/Resolved]
  - Nasopharyngitis [Recovered/Resolved]
  - Dyspepsia [Recovering/Resolving]
  - Hordeolum [Recovering/Resolving]
  - Lymphocyte count decreased [Recovering/Resolving]

NARRATIVE: CASE EVENT DATE: 20120314
